FAERS Safety Report 12164081 (Version 3)
Quarter: 2017Q1

REPORT INFORMATION
  Report Type: Spontaneous
  Country: FR (occurrence: FR)
  Receive Date: 20160309
  Receipt Date: 20170214
  Transmission Date: 20170428
  Serious: Yes (Life-Threatening, Other)
  Sender: FDA-Public Use
  Company Number: FR-GLAXOSMITHKLINE-FR2016GSK032900

PATIENT
  Age: 14 Year
  Sex: Female

DRUGS (9)
  1. AMBISOME [Suspect]
     Active Substance: AMPHOTERICIN B
     Indication: ANTIFUNGAL PROPHYLAXIS
     Dosage: 150 MG, 1D
     Route: 042
     Dates: start: 20151211, end: 20151211
  2. FORTUM [Concomitant]
     Active Substance: CEFTAZIDIME
     Indication: FEBRILE BONE MARROW APLASIA
     Dosage: UNK
     Dates: start: 20151206, end: 20151208
  3. TIENAM [Concomitant]
     Active Substance: CILASTATIN SODIUM\IMIPENEM
     Indication: ANTIBIOTIC PROPHYLAXIS
     Dosage: 500 MG, QID
     Route: 042
     Dates: start: 20151208, end: 20151215
  4. CIFLOX [Concomitant]
     Active Substance: CIPROFLOXACIN
     Dosage: 1 DF, BID
     Route: 048
     Dates: start: 20151210, end: 20151218
  5. ZOPHREN [Concomitant]
     Active Substance: ONDANSETRON
     Dosage: 1 DF, BID
     Route: 042
     Dates: start: 20151208
  6. IFOSFAMIDE. [Concomitant]
     Active Substance: IFOSFAMIDE
     Indication: OSTEOSARCOMA
  7. AMIKLIN [Concomitant]
     Active Substance: AMIKACIN SULFATE
     Indication: FEBRILE BONE MARROW APLASIA
     Dosage: UNK
     Dates: start: 20151206, end: 201512
  8. ZOVIRAX [Suspect]
     Active Substance: ACYCLOVIR
     Indication: ANTIVIRAL PROPHYLAXIS
     Dosage: 750 MG, TID
     Route: 042
     Dates: start: 20151211, end: 20151212
  9. VANCOMYCIN HYDROCHLORIDE. [Concomitant]
     Active Substance: VANCOMYCIN HYDROCHLORIDE
     Indication: ANTIBIOTIC PROPHYLAXIS
     Dosage: 500 MG, QID
     Route: 042
     Dates: start: 20151210, end: 20151222

REACTIONS (2)
  - Anaphylactic shock [Recovered/Resolved]
  - Product use issue [Unknown]

NARRATIVE: CASE EVENT DATE: 20151211
